FAERS Safety Report 21858222 (Version 2)
Quarter: 2023Q1

REPORT INFORMATION
  Report Type: Report from Study
  Country: US (occurrence: US)
  Receive Date: 20230113
  Receipt Date: 20230119
  Transmission Date: 20230417
  Serious: Yes (Hospitalization, Other)
  Sender: FDA-Public Use
  Company Number: US-ABBVIE-4266929

PATIENT
  Age: 76 Year
  Sex: Female
  Weight: 45 kg

DRUGS (2)
  1. DUOPA [Suspect]
     Active Substance: CARBIDOPA\LEVODOPA
     Indication: Parkinson^s disease
     Route: 050
     Dates: start: 20220301
  2. DUOPA [Suspect]
     Active Substance: CARBIDOPA\LEVODOPA

REACTIONS (17)
  - Femur fracture [Recovering/Resolving]
  - Device difficult to use [Not Recovered/Not Resolved]
  - Contrast media allergy [Recovering/Resolving]
  - Hypoaesthesia [Unknown]
  - Fall [Recovering/Resolving]
  - Pain [Recovered/Resolved]
  - Pain [Recovering/Resolving]
  - Chest discomfort [Recovered/Resolved]
  - Femur fracture [Recovered/Resolved]
  - Anxiety [Unknown]
  - Fall [Recovered/Resolved]
  - Neuropathy peripheral [Not Recovered/Not Resolved]
  - Impaired healing [Not Recovered/Not Resolved]
  - Neuropathy peripheral [Unknown]
  - Influenza like illness [Recovered/Resolved]
  - Enzyme abnormality [Unknown]
  - Muscle spasms [Unknown]

NARRATIVE: CASE EVENT DATE: 20221201
